FAERS Safety Report 5004677-1 (Version None)
Quarter: 2006Q2

REPORT INFORMATION
  Report Type: 
  Country: None (occurrence: None)
  Receive Date: 20060517
  Receipt Date: 20060419
  Transmission Date: 20061013
  Serious: Yes (Hospitalization)
  Sender: FDA-Public Use
  Company Number: AU-ABBOTT-06P-008-0331178-00

PATIENT
  Sex: Male

DRUGS (11)
  1. EPILIM SYRUP [Suspect]
     Indication: CONVULSION
     Route: 048
     Dates: start: 20051214, end: 20060308
  2. EPILIM SYRUP [Suspect]
     Route: 048
     Dates: start: 20050914, end: 20051113
  3. EPILIM SYRUP [Suspect]
     Route: 048
     Dates: start: 20051114, end: 20051124
  4. EPILIM SYRUP [Suspect]
     Dosage: 40 MG/ML
     Route: 048
     Dates: start: 20051125, end: 20051213
  5. EPILIM SYRUP [Suspect]
     Route: 048
     Dates: start: 20060309, end: 20060324
  6. EPILIM SYRUP [Suspect]
     Route: 048
     Dates: start: 20060328
  7. GALANTAMINE HYDROBROMIDE [Concomitant]
     Indication: DEMENTIA ALZHEIMER'S TYPE
     Route: 065
     Dates: start: 20030301
  8. FISH OIL [Concomitant]
     Indication: PROPHYLAXIS
     Route: 065
     Dates: start: 20030101, end: 20050715
  9. ACETYLSALICYLIC ACID SRT [Concomitant]
     Indication: CEREBROVASCULAR ACCIDENT PROPHYLAXIS
     Dates: start: 20030301
  10. GINGKO BILOBA [Concomitant]
     Indication: DEMENTIA ALZHEIMER'S TYPE
  11. OLANZAPINE [Concomitant]
     Indication: AGITATION
     Route: 065
     Dates: start: 20050114, end: 20060328

REACTIONS (4)
  - BEDRIDDEN [None]
  - CONVULSION [None]
  - DRUG INEFFECTIVE [None]
  - DRUG TOXICITY [None]
